FAERS Safety Report 20542396 (Version 1)
Quarter: 2022Q1

REPORT INFORMATION
  Report Type: Spontaneous
  Country: FR (occurrence: FR)
  Receive Date: 20220302
  Receipt Date: 20220302
  Transmission Date: 20220423
  Serious: Yes (Congenital Anomaly, Other)
  Sender: FDA-Public Use
  Company Number: FR-ABBVIE-22K-056-4298347-00

PATIENT
  Sex: Female

DRUGS (2)
  1. VALPROATE SODIUM [Suspect]
     Active Substance: VALPROATE SODIUM
     Indication: Maternal exposure timing unspecified
     Route: 064
  2. FOLIC ACID [Concomitant]
     Active Substance: FOLIC ACID
     Indication: Maternal exposure timing unspecified

REACTIONS (7)
  - Heart disease congenital [Not Recovered/Not Resolved]
  - Craniofacial deformity [Not Recovered/Not Resolved]
  - Congenital inguinal hernia [Recovered/Resolved with Sequelae]
  - Childhood asthma [Recovered/Resolved]
  - Otitis media chronic [Recovered/Resolved]
  - Polydactyly [Recovered/Resolved with Sequelae]
  - Foetal exposure during pregnancy [Unknown]

NARRATIVE: CASE EVENT DATE: 20020101
